FAERS Safety Report 23988930 (Version 1)
Quarter: 2024Q2

REPORT INFORMATION
  Report Type: Spontaneous
  Country: US (occurrence: US)
  Receive Date: 20240619
  Receipt Date: 20240619
  Transmission Date: 20240716
  Serious: No
  Sender: FDA-Public Use
  Company Number: US-JNJFOC-20240616951

PATIENT
  Sex: Female

DRUGS (2)
  1. MINOXIDIL [Suspect]
     Active Substance: MINOXIDIL
     Indication: Alopecia
     Route: 061
  2. ELOCON [Concomitant]
     Active Substance: MOMETASONE FUROATE
     Indication: Alopecia
     Route: 065

REACTIONS (1)
  - Product use in unapproved indication [Unknown]
